FAERS Safety Report 8201096-1 (Version None)
Quarter: 2012Q1

REPORT INFORMATION
  Report Type: 
  Country: None (occurrence: None)
  Receive Date: 20120312
  Receipt Date: 20120111
  Transmission Date: 20120608
  Serious: No
  Sender: FDA-Public Use
  Company Number: US-ABBOTT-12P-163-0893490-00

PATIENT
  Age: 31 Year
  Sex: Female
  Weight: 80.358 kg

DRUGS (1)
  1. LUPRON DEPOT [Suspect]
     Indication: UTERINE LEIOMYOMA
     Dates: start: 20111025, end: 20111201

REACTIONS (4)
  - DEPRESSION [None]
  - HOT FLUSH [None]
  - HYPOAESTHESIA [None]
  - HEADACHE [None]
